FAERS Safety Report 11616411 (Version 1)
Quarter: 2015Q4

REPORT INFORMATION
  Report Type: Spontaneous
  Country: US (occurrence: US)
  Receive Date: 20151009
  Receipt Date: 20151009
  Transmission Date: 20160304
  Serious: Yes (Other)
  Sender: FDA-Public Use
  Company Number: US-009507513-1510USA002296

PATIENT
  Sex: Female
  Weight: 100 kg

DRUGS (4)
  1. PREDNISONE. [Suspect]
     Active Substance: PREDNISONE
     Dosage: UNK
     Route: 048
  2. DECADRON [Suspect]
     Active Substance: DEXAMETHASONE
     Indication: PROPHYLAXIS
     Dosage: UNK
     Dates: start: 2015
  3. RELPAX [Suspect]
     Active Substance: ELETRIPTAN HYDROBROMIDE
     Indication: MIGRAINE
     Dosage: ONE TABLET, IF IT DOES NOT HELP ANOTHERTABLET TWO HOURS LATER
     Dates: start: 20150914
  4. NAPROXEN SODIUM. [Suspect]
     Active Substance: NAPROXEN SODIUM
     Dosage: UNK

REACTIONS (11)
  - Cardiac resynchronisation therapy [Unknown]
  - Chest pain [Unknown]
  - Diabetes mellitus [Unknown]
  - Migraine [Unknown]
  - Weight increased [Unknown]
  - Gastric bypass [Unknown]
  - Asthma [Recovering/Resolving]
  - Gastrooesophageal reflux disease [Not Recovered/Not Resolved]
  - Gastrooesophageal reflux disease [Recovered/Resolved]
  - Oesophageal spasm [Unknown]
  - Cough [Unknown]

NARRATIVE: CASE EVENT DATE: 1999
